FAERS Safety Report 7958520-9 (Version None)
Quarter: 2011Q4

REPORT INFORMATION
  Report Type: 
  Country: None (occurrence: None)
  Receive Date: 20111206
  Receipt Date: 20111128
  Transmission Date: 20120403
  Serious: Yes (Hospitalization)
  Sender: FDA-Public Use
  Company Number: US-BIOGENIDEC-2011BI045221

PATIENT
  Age: 56 Year
  Sex: Female

DRUGS (2)
  1. TYSABRI [Suspect]
     Indication: MULTIPLE SCLEROSIS
     Route: 042
     Dates: start: 20110331
  2. TYSABRI [Suspect]
     Route: 042
     Dates: start: 20081014, end: 20101215

REACTIONS (8)
  - PAIN [None]
  - ARTHROPATHY [None]
  - LIMB OPERATION [None]
  - HYPOAESTHESIA [None]
  - FATIGUE [None]
  - ARTHRALGIA [None]
  - DYSSTASIA [None]
  - PARAESTHESIA [None]
